FAERS Safety Report 8135264-4 (Version None)
Quarter: 2012Q1

REPORT INFORMATION
  Report Type: 
  Country: None (occurrence: None)
  Receive Date: 20120209
  Receipt Date: 20120202
  Transmission Date: 20120608
  Serious: Yes (Other)
  Sender: FDA-Public Use
  Company Number: A0964287A

PATIENT
  Age: 84 Year
  Sex: Female

DRUGS (1)
  1. UREA PEROXIDE [Suspect]

REACTIONS (6)
  - ORAL DISCOMFORT [None]
  - OEDEMA MOUTH [None]
  - STOMATITIS [None]
  - ORAL MUCOSAL ERYTHEMA [None]
  - LACERATION [None]
  - CHEILITIS [None]
